FAERS Safety Report 13884241 (Version 2)
Quarter: 2018Q2

REPORT INFORMATION
  Report Type: Report from Study
  Country: None (occurrence: DE)
  Receive Date: 20170821
  Receipt Date: 20180419
  Transmission Date: 20180711
  Serious: Yes (Life-Threatening, Hospitalization, Other)
  Sender: FDA-Public Use
  Company Number: DE-ABBVIE-17K-062-2075662-00

PATIENT
  Age: 57 Year
  Sex: Male
  Weight: 92 kg

DRUGS (1)
  1. HUMIRA [Suspect]
     Active Substance: ADALIMUMAB
     Indication: PSORIASIS
     Route: 058
     Dates: start: 20130617

REACTIONS (13)
  - Hepatic haematoma [Recovering/Resolving]
  - Ischaemic hepatitis [Recovering/Resolving]
  - Renal failure [Recovered/Resolved with Sequelae]
  - Pneumonia [Recovering/Resolving]
  - Ventricular fibrillation [Recovered/Resolved with Sequelae]
  - Metabolic acidosis [Recovering/Resolving]
  - Arteriosclerosis coronary artery [Recovering/Resolving]
  - Acute coronary syndrome [Recovered/Resolved with Sequelae]
  - Coronary artery disease [Recovering/Resolving]
  - Myocardial ischaemia [Recovering/Resolving]
  - Coronary artery stenosis [Recovering/Resolving]
  - Cardiogenic shock [Recovered/Resolved with Sequelae]
  - Pleural effusion [Recovering/Resolving]

NARRATIVE: CASE EVENT DATE: 20170514
